FAERS Safety Report 4397541-2 (Version None)
Quarter: 2004Q3

REPORT INFORMATION
  Report Type: 
  Country: None (occurrence: None)
  Receive Date: 20040713
  Receipt Date: 20040708
  Transmission Date: 20050211
  Serious: Yes (Other)
  Sender: FDA-Public Use
  Company Number: C04-T-100

PATIENT
  Age: 36 Year
  Sex: Female
  Weight: 99.7913 kg

DRUGS (1)
  1. PHENTERMINE HCL [Suspect]
     Indication: WEIGHT CONTROL
     Dates: start: 20040625, end: 20040626

REACTIONS (1)
  - THERAPEUTIC PRODUCT INEFFECTIVE [None]
